FAERS Safety Report 6168076-1 (Version None)
Quarter: 2009Q2

REPORT INFORMATION
  Report Type: 
  Country: None (occurrence: None)
  Receive Date: 20090427
  Receipt Date: 20090325
  Transmission Date: 20091009
  Serious: No
  Sender: FDA-Public Use
  Company Number: US-BAYER-200912976NA

PATIENT
  Age: 22 Year
  Sex: Female

DRUGS (1)
  1. YAZ [Suspect]
     Indication: MENSTRUATION IRREGULAR
     Route: 048
     Dates: start: 20070901, end: 20080601

REACTIONS (3)
  - AMENORRHOEA [None]
  - DYSPNOEA [None]
  - NO ADVERSE EVENT [None]
